FAERS Safety Report 6706020-6 (Version None)
Quarter: 2010Q2

REPORT INFORMATION
  Report Type: 
  Country: None (occurrence: None)
  Receive Date: 20100503
  Receipt Date: 20100429
  Transmission Date: 20101027
  Serious: Yes (Other)
  Sender: FDA-Public Use
  Company Number: DE-BRISTOL-MYERS SQUIBB COMPANY-14020762

PATIENT
  Age: 38 Year
  Sex: Female
  Weight: 107 kg

DRUGS (3)
  1. ORENCIA [Suspect]
     Indication: RHEUMATOID ARTHRITIS
     Route: 058
     Dates: start: 20070731, end: 20070828
  2. RITUXIMAB [Concomitant]
  3. PREDNISOLONE [Concomitant]
     Indication: RHEUMATOID ARTHRITIS
     Dates: start: 20030101

REACTIONS (4)
  - CAESAREAN SECTION [None]
  - GESTATIONAL DIABETES [None]
  - NORMAL NEWBORN [None]
  - PREGNANCY [None]
